FAERS Safety Report 8189900-7 (Version None)
Quarter: 2012Q1

REPORT INFORMATION
  Report Type: 
  Country: None (occurrence: None)
  Receive Date: 20120305
  Receipt Date: 20120223
  Transmission Date: 20120608
  Serious: Yes (Hospitalization, Other)
  Sender: FDA-Public Use
  Company Number: AUR-APL-2011-06169

PATIENT
  Age: 62 Year
  Sex: Female

DRUGS (6)
  1. AMLODIPINE [Concomitant]
  2. METFORMIN HCL [Suspect]
     Indication: TYPE 2 DIABETES MELLITUS
     Dosage: 2550 MG (850 MG, 3 IN 1 D)
  3. INSULIN ASPART (INSULIN ASPART) [Concomitant]
  4. OLMESARTAN MEDOXOMIL [Suspect]
     Indication: HYPERTENSION
     Dosage: 40 MG (40 MG, 1 IN 1 D), ORAL
     Route: 048
  5. ATORVASTATIN [Concomitant]
  6. INSULIN GLARGINE (INSULIN GLARGINE) [Concomitant]

REACTIONS (15)
  - METABOLIC ACIDOSIS [None]
  - BODY TEMPERATURE DECREASED [None]
  - LACTIC ACIDOSIS [None]
  - ASPARTATE AMINOTRANSFERASE INCREASED [None]
  - NAUSEA [None]
  - RENAL FAILURE ACUTE [None]
  - ALANINE AMINOTRANSFERASE INCREASED [None]
  - BLOOD PRESSURE INCREASED [None]
  - ACUTE ABDOMEN [None]
  - DIARRHOEA [None]
  - DISORIENTATION [None]
  - ABDOMINAL PAIN [None]
  - VOMITING [None]
  - STREPTOCOCCUS TEST POSITIVE [None]
  - DEHYDRATION [None]
